FAERS Safety Report 4466671-9 (Version None)
Quarter: 2004Q4

REPORT INFORMATION
  Report Type: 
  Country: None (occurrence: None)
  Receive Date: 20041006
  Receipt Date: 20040928
  Transmission Date: 20050328
  Serious: Yes (Other)
  Sender: FDA-Public Use
  Company Number: US-JNJFOC-20040909643

PATIENT
  Sex: Female
  Weight: 90.72 kg

DRUGS (7)
  1. REMICADE [Suspect]
     Dosage: LAST INFUSION WAS OVER ONE YEAR AGO.
     Route: 042
  2. REMICADE [Suspect]
     Indication: RHEUMATOID ARTHRITIS
     Route: 042
  3. PREDNISONE [Concomitant]
  4. ARAVA [Concomitant]
  5. ENDOCET [Concomitant]
  6. ENDOCET [Concomitant]
  7. XANAX [Concomitant]

REACTIONS (11)
  - APHASIA [None]
  - CELLULITIS [None]
  - DIFFICULTY IN WALKING [None]
  - EPISTAXIS [None]
  - FEELING HOT [None]
  - INFUSION RELATED REACTION [None]
  - LACRIMATION INCREASED [None]
  - SINUS DISORDER [None]
  - SINUSITIS [None]
  - SKIN DISCOLOURATION [None]
  - THROAT TIGHTNESS [None]
